FAERS Safety Report 19925757 (Version 1)
Quarter: 2021Q4

REPORT INFORMATION
  Report Type: Spontaneous
  Country: US (occurrence: US)
  Receive Date: 20211007
  Receipt Date: 20211007
  Transmission Date: 20220304
  Serious: No
  Sender: FDA-Public Use
  Company Number: US-BIOGEN-2021BI01054975

PATIENT
  Sex: Female

DRUGS (1)
  1. TECFIDERA [Suspect]
     Active Substance: DIMETHYL FUMARATE
     Indication: Multiple sclerosis
     Route: 048

REACTIONS (6)
  - Overdose [Unknown]
  - Product dose omission issue [Unknown]
  - Illness [Unknown]
  - Abdominal pain upper [Unknown]
  - Headache [Unknown]
  - Hangover [Unknown]
